FAERS Safety Report 10928080 (Version 1)
Quarter: 2015Q1

REPORT INFORMATION
  Report Type: Spontaneous
  Country: GR (occurrence: GR)
  Receive Date: 20150319
  Receipt Date: 20150319
  Transmission Date: 20150721
  Serious: Yes (Other)
  Sender: FDA-Public Use
  Company Number: GR-BIOGENIDEC-2014BI137688

PATIENT
  Age: 45 Year
  Sex: Female

DRUGS (1)
  1. TYSABRI [Suspect]
     Active Substance: NATALIZUMAB
     Indication: MULTIPLE SCLEROSIS
     Route: 042
     Dates: start: 20140524, end: 20140731

REACTIONS (4)
  - Drug-induced liver injury [Recovered/Resolved]
  - Hepatic steatosis [Recovered/Resolved]
  - Hepatic enzyme increased [Recovered/Resolved]
  - Alanine aminotransferase increased [Recovered/Resolved]
